FAERS Safety Report 6393827-0 (Version None)
Quarter: 2009Q4

REPORT INFORMATION
  Report Type: 
  Country: None (occurrence: None)
  Receive Date: 20091008
  Receipt Date: 20091002
  Transmission Date: 20100525
  Serious: Yes (Death, Hospitalization)
  Sender: FDA-Public Use
  Company Number: US-BRISTOL-MYERS SQUIBB COMPANY-14788285

PATIENT
  Age: 69 Year
  Sex: Male
  Weight: 81 kg

DRUGS (2)
  1. CETUXIMAB [Suspect]
     Indication: BLADDER CANCER
     Dosage: STRENGTH:50MG CYCLE 3 DAY 8 08JUL09-11SEP09 INTERRUPTED ON 18SEP09 INITIATED WITH 400MG/M2
     Route: 042
     Dates: start: 20090708
  2. PACLITAXEL [Suspect]
     Indication: BLADDER CANCER
     Dosage: 1 DF = 80-70-60MG/M2
     Route: 042
     Dates: start: 20090708, end: 20090812

REACTIONS (5)
  - ANAEMIA [None]
  - FATIGUE [None]
  - HEPATIC FAILURE [None]
  - NEUTROPENIA [None]
  - RASH [None]
